FAERS Safety Report 10633462 (Version 1)
Quarter: 2014Q4

REPORT INFORMATION
  Report Type: Spontaneous
  Country: US (occurrence: None)
  Receive Date: 20141203
  Receipt Date: 20141203
  Transmission Date: 20150529
  Serious: Yes (Hospitalization)
  Sender: FDA-Public Use
  Company Number: 2014SA162567

PATIENT
  Sex: Female

DRUGS (1)
  1. GOLD BOND ANTI ITCH [Suspect]
     Active Substance: MENTHOL\PRAMOXINE HYDROCHLORIDE
     Indication: PRURITUS

REACTIONS (1)
  - Product container issue [None]

NARRATIVE: CASE EVENT DATE: 201411
